FAERS Safety Report 16348601 (Version 1)
Quarter: 2019Q2

REPORT INFORMATION
  Report Type: Spontaneous
  Country: US (occurrence: US)
  Receive Date: 20190523
  Receipt Date: 20190523
  Transmission Date: 20190711
  Serious: Yes (Hospitalization, Other)
  Sender: FDA-Public Use
  Company Number: US-JNJFOC-20190519208

PATIENT
  Sex: Female
  Weight: 70.31 kg

DRUGS (3)
  1. PALIPERIDONE ER [Suspect]
     Active Substance: PALIPERIDONE
     Indication: SCHIZOPHRENIA
     Route: 048
  2. PALIPERIDONE ER [Suspect]
     Active Substance: PALIPERIDONE
     Indication: BIPOLAR DISORDER
     Route: 048
  3. PALIPERIDONE ER [Suspect]
     Active Substance: PALIPERIDONE
     Indication: DEPRESSION
     Route: 048

REACTIONS (3)
  - Hiatus hernia [Not Recovered/Not Resolved]
  - Cataract [Not Recovered/Not Resolved]
  - Choking [Recovered/Resolved]

NARRATIVE: CASE EVENT DATE: 2017
